FAERS Safety Report 13693395 (Version 1)
Quarter: 2017Q2

REPORT INFORMATION
  Report Type: Spontaneous
  Country: US (occurrence: US)
  Receive Date: 20170627
  Receipt Date: 20170627
  Transmission Date: 20170830
  Serious: No
  Sender: FDA-Public Use
  Company Number: US-BAYER-2017-123344

PATIENT
  Age: 46 Year
  Sex: Male

DRUGS (1)
  1. BETASERON [Suspect]
     Active Substance: INTERFERON BETA-1B
     Indication: NEOPLASM MALIGNANT
     Dosage: 0.3 MG, QOD
     Route: 058
     Dates: start: 20160128

REACTIONS (3)
  - Product use in unapproved indication [None]
  - Off label use [None]
  - Injection site erythema [None]
